FAERS Safety Report 5114755-4 (Version None)
Quarter: 2006Q3

REPORT INFORMATION
  Report Type: 
  Country: None (occurrence: None)
  Receive Date: 20060922
  Receipt Date: 20060915
  Transmission Date: 20061208
  Serious: Yes (Other)
  Sender: FDA-Public Use
  Company Number: 2006111646

PATIENT
  Sex: Male
  Weight: 81.6475 kg

DRUGS (1)
  1. LIPITOR [Suspect]
     Indication: BLOOD CHOLESTEROL INCREASED
     Dosage: 10 MG (10 MG, 1 IN 1 D)
     Dates: start: 20040101

REACTIONS (5)
  - IMPAIRED HEALING [None]
  - JOINT INJURY [None]
  - MUSCLE INJURY [None]
  - SKELETAL INJURY [None]
  - SPINAL DISORDER [None]
